FAERS Safety Report 7771463-9 (Version None)
Quarter: 2011Q3

REPORT INFORMATION
  Report Type: 
  Country: None (occurrence: None)
  Receive Date: 20110922
  Receipt Date: 20101004
  Transmission Date: 20111222
  Serious: No
  Sender: FDA-Public Use
  Company Number: US-ASTRAZENECA-2010SE46717

PATIENT
  Age: 16207 Day
  Sex: Female

DRUGS (8)
  1. PROZAC [Concomitant]
     Indication: DEPRESSION
     Route: 048
  2. PRIMIDONE [Concomitant]
     Indication: TREMOR
     Route: 048
  3. REGLAN [Concomitant]
     Indication: MIGRAINE
     Route: 048
     Dates: start: 20101001
  4. AMBIEN CR [Concomitant]
     Indication: SLEEP DISORDER
     Route: 048
  5. REQUIP [Concomitant]
     Indication: RESTLESS LEGS SYNDROME
     Route: 048
  6. KLONOPIN [Concomitant]
     Indication: ANXIETY
     Route: 048
  7. ESTRADIOL [Concomitant]
     Indication: HORMONE REPLACEMENT THERAPY
     Route: 048
  8. SEROQUEL XR [Suspect]
     Indication: SLEEP DISORDER
     Route: 048
     Dates: start: 20101001, end: 20101002

REACTIONS (7)
  - MENTAL IMPAIRMENT [None]
  - DRY MOUTH [None]
  - DIZZINESS [None]
  - CONFUSIONAL STATE [None]
  - COMMUNICATION DISORDER [None]
  - TREMOR [None]
  - ASTHENIA [None]
